FAERS Safety Report 15327776 (Version 1)
Quarter: 2018Q3

REPORT INFORMATION
  Report Type: Spontaneous
  Country: US (occurrence: US)
  Receive Date: 20180828
  Receipt Date: 20180828
  Transmission Date: 20181010
  Serious: No
  Sender: FDA-Public Use
  Company Number: US-ROCHE-2134144

PATIENT
  Sex: Female
  Weight: 65.83 kg

DRUGS (1)
  1. ALECENSA [Suspect]
     Active Substance: ALECTINIB HYDROCHLORIDE
     Indication: NEOPLASM MALIGNANT
     Dosage: TAKE 4 CAPSULES (600)
     Route: 048
     Dates: start: 20180508

REACTIONS (3)
  - Dysgeusia [Unknown]
  - Pigmentation disorder [Unknown]
  - Constipation [Unknown]
